FAERS Safety Report 14632396 (Version 1)
Quarter: 2018Q1

REPORT INFORMATION
  Report Type: Spontaneous
  Country: US (occurrence: US)
  Receive Date: 20180313
  Receipt Date: 20180313
  Transmission Date: 20180509
  Serious: Yes (Hospitalization)
  Sender: FDA-Public Use
  Company Number: US-ASTRAZENECA-2018SE31128

PATIENT
  Age: 28880 Day
  Sex: Male
  Weight: 87.1 kg

DRUGS (15)
  1. ATORVASTATIN [Concomitant]
     Active Substance: ATORVASTATIN
     Indication: PROPHYLAXIS
     Route: 048
     Dates: start: 20180123
  2. VITAMIN B12 [Concomitant]
     Active Substance: CYANOCOBALAMIN
  3. RAPAFLO [Concomitant]
     Active Substance: SILODOSIN
     Indication: PROSTATE EXAMINATION ABNORMAL
     Route: 048
     Dates: start: 2013
  4. ASPIRIN. [Concomitant]
     Active Substance: ASPIRIN
     Indication: SUPPLEMENTATION THERAPY
     Route: 048
     Dates: start: 20180123
  5. ATORVASTATIN [Concomitant]
     Active Substance: ATORVASTATIN
     Indication: BLOOD CHOLESTEROL ABNORMAL
     Route: 048
     Dates: start: 20180123
  6. FISH OIL [Concomitant]
     Active Substance: FISH OIL
  7. VITAMIN D [Concomitant]
     Active Substance: CHOLECALCIFEROL
  8. ALLOPURINOL. [Concomitant]
     Active Substance: ALLOPURINOL
     Indication: GOUT
     Route: 048
     Dates: start: 2005
  9. VITAMIN C [Concomitant]
     Active Substance: ASCORBIC ACID
  10. BRILINTA [Suspect]
     Active Substance: TICAGRELOR
     Indication: CORONARY ARTERY OCCLUSION
     Route: 048
     Dates: start: 20180123
  11. SYNTHROID [Concomitant]
     Active Substance: LEVOTHYROXINE SODIUM
     Indication: THYROID DISORDER
     Route: 048
  12. MAGNESIUM [Concomitant]
     Active Substance: MAGNESIUM
  13. BRILINTA [Suspect]
     Active Substance: TICAGRELOR
     Indication: STENT PLACEMENT
     Route: 048
     Dates: start: 20180123
  14. ENALAPRIL HCTZ [Concomitant]
     Active Substance: ENALAPRIL MALEATE\HYDROCHLOROTHIAZIDE
     Indication: HYPERTENSION
     Dosage: 10/25 TWO TIMES A DAY
     Route: 048
     Dates: start: 1995
  15. TRAVATAN Z [Concomitant]
     Active Substance: TRAVOPROST
     Route: 047
     Dates: start: 2004

REACTIONS (7)
  - Coronary artery occlusion [Recovered/Resolved]
  - Blood test abnormal [Recovered/Resolved]
  - Rhinorrhoea [Recovered/Resolved]
  - Haemoglobin decreased [Unknown]
  - Electrocardiogram abnormal [Recovered/Resolved]
  - Faeces discoloured [Recovered/Resolved]
  - Epistaxis [Recovered/Resolved]

NARRATIVE: CASE EVENT DATE: 20180124
